FAERS Safety Report 6531063-5 (Version None)
Quarter: 2010Q1

REPORT INFORMATION
  Report Type: 
  Country: None (occurrence: None)
  Receive Date: 20100108
  Receipt Date: 20091105
  Transmission Date: 20100710
  Serious: No
  Sender: FDA-Public Use
  Company Number: A0815383A

PATIENT
  Age: 72 Year
  Sex: Female

DRUGS (10)
  1. LOVAZA [Suspect]
     Dosage: 2CAP PER DAY
     Route: 048
     Dates: start: 20091025, end: 20091028
  2. METFORMIN HYDROCHLORIDE [Concomitant]
  3. JANUVIA [Concomitant]
  4. GLIMEPIRIDE [Concomitant]
  5. OMEPRAZOLE [Concomitant]
  6. LEVOTHYROXINE SODIUM [Concomitant]
  7. LISINOPRIL [Concomitant]
  8. DIURETIC [Concomitant]
  9. COUMADIN [Concomitant]
  10. ATENOLOL [Concomitant]

REACTIONS (1)
  - VOMITING [None]
